FAERS Safety Report 8711230 (Version 2)
Quarter: 2012Q4

REPORT INFORMATION
  Report Type: 
  Country: JP (occurrence: JP)
  Receive Date: 20120807
  Receipt Date: 20121016
  Transmission Date: 20130627
  Serious: Yes (Hospitalization, Other)
  Sender: FDA-Public Use
  Company Number: JP-009507513-2012SP021357

PATIENT
  Age: 36 Year
  Sex: Female
  Weight: 63 kg

DRUGS (13)
  1. PEGINTERFERON ALFA-2B [Suspect]
     Indication: HEPATITIS C
     Dosage: 1.5 Microgram per kilogram, QW
     Route: 058
     Dates: start: 20120113, end: 20120629
  2. REBETOL [Suspect]
     Indication: HEPATITIS C
     Dosage: 800 mg, QD
     Route: 048
     Dates: start: 20120113, end: 20120301
  3. REBETOL [Suspect]
     Dosage: 400 mg, QD
     Route: 048
     Dates: start: 20120302, end: 20120315
  4. REBETOL [Suspect]
     Dosage: 200 mg, QD
     Route: 048
     Dates: start: 20120316, end: 20120319
  5. REBETOL [Suspect]
     Dosage: 200mg/twice a week on Monday and Friday
     Route: 048
     Dates: start: 20120330, end: 20120405
  6. REBETOL [Suspect]
     Dosage: 200 mg, QOD
     Route: 048
     Dates: start: 20120406, end: 20120419
  7. REBETOL [Suspect]
     Dosage: 200 mg, Once
     Route: 048
     Dates: start: 20120420, end: 20120426
  8. REBETOL [Suspect]
     Dosage: 400 mg, Once
     Route: 048
     Dates: start: 20120427, end: 20120614
  9. REBETOL [Suspect]
     Dosage: 600 mg, Once
     Route: 048
     Dates: start: 20120615, end: 20120629
  10. TELAVIC [Suspect]
     Indication: HEPATITIS C
     Dosage: 1500 mg, QD
     Route: 048
     Dates: start: 20120113, end: 20120406
  11. LOXONIN [Concomitant]
     Indication: PROPHYLAXIS
     Dosage: UPDATE(24MAY2012):FORM:POR
     Route: 048
     Dates: start: 20120113, end: 20120123
  12. HIRUDOID [Concomitant]
     Indication: PROPHYLAXIS
     Dosage: UPDATE(24MAY2012): FORM: OIT, DOSAGE: PROPER QUANTITY
     Route: 051
     Dates: start: 20120113, end: 20120413
  13. HIRUDOID [Concomitant]
     Dosage: Proper quantity/day
     Route: 061
     Dates: start: 20120113, end: 20120413

REACTIONS (7)
  - White blood cell count decreased [Recovered/Resolved]
  - Haemoglobin decreased [Not Recovered/Not Resolved]
  - Orthostatic hypotension [Recovered/Resolved]
  - Decreased appetite [None]
  - Vomiting [None]
  - Hyperuricaemia [None]
  - Platelet count decreased [None]
